FAERS Safety Report 24056841 (Version 1)
Quarter: 2024Q3

REPORT INFORMATION
  Report Type: Report from Study
  Country: US (occurrence: US)
  Receive Date: 20240706
  Receipt Date: 20240706
  Transmission Date: 20241017
  Serious: Yes (Hospitalization, Other)
  Sender: ABBVIE
  Company Number: US-ABBVIE-5826906

PATIENT
  Age: 44 Year
  Sex: Male

DRUGS (1)
  1. SKYRIZI [Suspect]
     Active Substance: RISANKIZUMAB-RZAA
     Indication: Crohn^s disease
     Route: 058

REACTIONS (8)
  - Fall [Unknown]
  - Gastrointestinal haemorrhage [Recovering/Resolving]
  - Clavicle fracture [Recovering/Resolving]
  - Rotator cuff syndrome [Recovering/Resolving]
  - Dizziness [Unknown]
  - Discoloured vomit [Unknown]
  - Faeces discoloured [Unknown]
  - Dehydration [Unknown]

NARRATIVE: CASE EVENT DATE: 20240624
